FAERS Safety Report 7249230-4 (Version None)
Quarter: 2011Q1

REPORT INFORMATION
  Report Type: 
  Country: None (occurrence: None)
  Receive Date: 20110128
  Receipt Date: 20101201
  Transmission Date: 20110831
  Serious: Yes (Hospitalization)
  Sender: FDA-Public Use
  Company Number: US-BAYER-2010-000740

PATIENT
  Sex: Male
  Weight: 172 kg

DRUGS (8)
  1. BETASERON [Suspect]
     Indication: PRODUCT USED FOR UNKNOWN INDICATION
     Dosage: 8 MIU, UNK
     Route: 058
  2. LEVOTHYROXINE SODIUM [Concomitant]
  3. AMANTADINE HCL [Concomitant]
     Dosage: 100 MG, UNK
  4. ZOLPIDEM [Concomitant]
     Dosage: 5 MG, UNK
  5. LIPITOR [Concomitant]
     Dosage: 10 MG, UNK
  6. AMITRIPTYLINE HCL [Concomitant]
     Dosage: 10 MG, UNK
  7. LEXAPRO [Concomitant]
     Dosage: 5 MG, UNK
  8. LEVOTHYROXINE SODIUM [Concomitant]
     Dosage: 25 MCG/24HR, UNK

REACTIONS (1)
  - PNEUMONIA [None]
